FAERS Safety Report 18576330 (Version 1)
Quarter: 2020Q4

REPORT INFORMATION
  Report Type: Spontaneous
  Country: US (occurrence: US)
  Receive Date: 20201203
  Receipt Date: 20201203
  Transmission Date: 20210114
  Serious: Yes (Other)
  Sender: FDA-Public Use
  Company Number: US-BRISTOL-MYERS SQUIBB COMPANY-BMS-2020-102630

PATIENT
  Age: 52 Year
  Sex: Female
  Weight: 69.9 kg

DRUGS (4)
  1. METHOTREXATE. [Suspect]
     Active Substance: METHOTREXATE
     Indication: RHEUMATOID ARTHRITIS
     Dosage: 2.5 MG 8 TABS WEEKLY SPLIT DOSE 24 HR APART (TAKE 4 TABLETS BY MOUTH ON MONDAY AND TUESDAY)
     Route: 048
  2. ORENCIA [Suspect]
     Active Substance: ABATACEPT
     Indication: RHEUMATOID ARTHRITIS
     Dosage: 125 MILLIGRAM, QWK
     Route: 058
  3. FOLVITE [FOLIC ACID] [Concomitant]
     Indication: PRODUCT USED FOR UNKNOWN INDICATION
     Dosage: 1 MG DAILY, ONE TABLET DAILY
     Route: 065
  4. ARTIFICIAL TEARS [PROPYLENE GLYCOL] [Concomitant]
     Indication: DRY EYE
     Dosage: UNK, PRN
     Route: 065

REACTIONS (10)
  - Coccydynia [Recovering/Resolving]
  - Rheumatoid nodule [Unknown]
  - Piriformis syndrome [Recovering/Resolving]
  - Asthma [Unknown]
  - Bronchitis [Unknown]
  - Fatigue [Unknown]
  - Back pain [Recovering/Resolving]
  - Migraine [Not Recovered/Not Resolved]
  - Anxiety [Unknown]
  - Pain in extremity [Unknown]

NARRATIVE: CASE EVENT DATE: 201910
